FAERS Safety Report 8826992 (Version 2)
Quarter: 2013Q1

REPORT INFORMATION
  Report Type: Spontaneous
  Country: US (occurrence: US)
  Receive Date: 20121007
  Receipt Date: 20130304
  Transmission Date: 20140127
  Serious: Yes (Hospitalization)
  Sender: FDA-Public Use
  Company Number: US-ELI_LILLY_AND_COMPANY-US201210000140

PATIENT
  Age: 80 Year
  Sex: Female
  Weight: 65.31 kg

DRUGS (8)
  1. FORTEO [Suspect]
     Indication: OSTEOPOROSIS
     Dosage: 20 UG, QD
     Route: 058
     Dates: start: 20120914, end: 20120926
  2. LISINOPRIL [Concomitant]
     Dosage: 20 MG, QD
  3. LEVOTHYROXINE [Concomitant]
     Dosage: 50 UG, QD
  4. VITAMINS [Concomitant]
     Dosage: UNK, UNKNOWN
  5. REQUIP [Concomitant]
     Dosage: 1 MG, QHS
  6. ASPIRIN [Concomitant]
     Dosage: 81 MG, QD
  7. PRAVASTATIN SODIUM [Concomitant]
     Dosage: 20 MG, QD
  8. TOPROL [Concomitant]
     Dosage: 25 MG, QD

REACTIONS (1)
  - Acute myocardial infarction [Recovered/Resolved]
